FAERS Safety Report 4681772-8 (Version None)
Quarter: 2005Q2

REPORT INFORMATION
  Report Type: 
  Country: None (occurrence: None)
  Receive Date: 20050602
  Receipt Date: 20050512
  Transmission Date: 20051028
  Serious: Yes (Hospitalization, Other)
  Sender: FDA-Public Use
  Company Number: 2005050275

PATIENT
  Age: 72 Year
  Sex: Male
  Weight: 89.8122 kg

DRUGS (15)
  1. CELEBREX [Suspect]
     Indication: ARTHRITIS
     Dosage: ORAL
     Route: 048
     Dates: end: 20050123
  2. BEXTRA [Suspect]
     Indication: ARTHRALGIA
     Dates: end: 20050123
  3. ASPIRIN [Suspect]
     Indication: ANALGESIC INTERVENTION SUPPORTIVE THERAPY
     Dosage: 81 MG (81 MG 1 IN 1 D) ORAL
     Route: 048
     Dates: start: 19990101, end: 20050123
  4. VIOXX [Suspect]
     Indication: ARTHRITIS
     Dosage: ORAL
     Route: 048
     Dates: end: 20050123
  5. AVANDIA (ROSGLITAZONE) [Concomitant]
  6. LIPITOR [Concomitant]
  7. MULTIVITAMIN [Concomitant]
  8. FLUCONAZOLE [Concomitant]
  9. ALTACE [Concomitant]
  10. SULFAMETHOXAZOLE + TRIMETHOPRIM [Concomitant]
  11. TRAZODONE HCL [Concomitant]
  12. ACETAMINOPHEN [Concomitant]
  13. VARDENAFIL (VARDENAFIL) [Concomitant]
  14. ATENOLOL [Concomitant]
  15. VITAMIN E [Concomitant]

REACTIONS (14)
  - ATRIOVENTRICULAR BLOCK FIRST DEGREE [None]
  - AZOTAEMIA [None]
  - BLOOD GLUCOSE INCREASED [None]
  - BLOOD PRESSURE ORTHOSTATIC DECREASED [None]
  - CHEST PAIN [None]
  - FEELING HOT [None]
  - GASTRIC ULCER HAEMORRHAGE [None]
  - HAEMATOCRIT DECREASED [None]
  - HAEMOGLOBIN DECREASED [None]
  - HEADACHE [None]
  - HELICOBACTER INFECTION [None]
  - HYPERHIDROSIS [None]
  - VOLUME BLOOD DECREASED [None]
  - WHITE BLOOD CELL COUNT DECREASED [None]
